FAERS Safety Report 21382565 (Version 1)
Quarter: 2022Q3

REPORT INFORMATION
  Report Type: Other
  Country: CN (occurrence: None)
  Receive Date: 20220927
  Receipt Date: 20220927
  Transmission Date: 20221026
  Serious: Yes (Other)
  Sender: FDA-Public Use
  Company Number: CN-ROCHE-3184597

PATIENT
  Age: 74 Year
  Sex: Female

DRUGS (6)
  1. CAPECITABINE [Suspect]
     Active Substance: CAPECITABINE
     Indication: Rectal cancer
     Dosage: FOR DAY1-14
     Route: 048
     Dates: start: 20120913
  2. CAPECITABINE [Suspect]
     Active Substance: CAPECITABINE
     Dosage: 1.5 G IN THE MORNING AND 1.5 G IN THE EVENING, DAYS 1-14
     Route: 048
     Dates: start: 20121102
  3. WARFARIN [Suspect]
     Active Substance: WARFARIN
     Indication: Rheumatic heart disease
     Dosage: 1.25-2.5MG/DAY
     Route: 048
     Dates: end: 201210
  4. WARFARIN [Suspect]
     Active Substance: WARFARIN
     Route: 048
     Dates: start: 20121109
  5. OXALIPLATIN [Concomitant]
     Active Substance: OXALIPLATIN
     Dosage: FOR DAY1
     Route: 065
     Dates: start: 20120913
  6. OXALIPLATIN [Concomitant]
     Active Substance: OXALIPLATIN
     Dosage: FOR DAY1
     Dates: start: 20121102

REACTIONS (2)
  - Gastrointestinal haemorrhage [Recovered/Resolved]
  - Drug interaction [Unknown]
